FAERS Safety Report 22625288 (Version 1)
Quarter: 2023Q2

REPORT INFORMATION
  Report Type: Other
  Country: EG (occurrence: EG)
  Receive Date: 20230621
  Receipt Date: 20230621
  Transmission Date: 20230722
  Serious: Yes (Other)
  Sender: FDA-Public Use
  Company Number: EG-002147023-NVSC2023EG135134

PATIENT
  Age: 72 Year
  Sex: Male

DRUGS (4)
  1. LUCENTIS [Suspect]
     Active Substance: RANIBIZUMAB
     Indication: Macular oedema
     Route: 050
     Dates: start: 20220310, end: 20230608
  2. NEVANAC [Concomitant]
     Active Substance: NEPAFENAC
     Indication: Product used for unknown indication
     Dosage: UNK UNK, BID (AFTER LUCENTIS INJECTION)
     Dates: start: 20230608
  3. MOXIFLOXACIN HYDROCHLORIDE [Concomitant]
     Active Substance: MOXIFLOXACIN HYDROCHLORIDE
     Indication: Product used for unknown indication
     Dosage: UNK (5 TIMES DAILY AFTER LUCENTIS INJECTION)
     Dates: start: 20230608
  4. ATOREZA [Concomitant]
     Indication: Blood cholesterol increased
     Dosage: 1 DOSAGE FORM, QD (AT NIGHT) (SINCE 5-6 YEARS AGO)

REACTIONS (2)
  - Macular oedema [Not Recovered/Not Resolved]
  - Off label use [Unknown]

NARRATIVE: CASE EVENT DATE: 20220310
